FAERS Safety Report 8360272-8 (Version None)
Quarter: 2012Q2

REPORT INFORMATION
  Report Type: 
  Country: None (occurrence: None)
  Receive Date: 20120515
  Receipt Date: 20120502
  Transmission Date: 20120825
  Serious: Yes (Disabling)
  Sender: FDA-Public Use
  Company Number: US-JNJFOC-20120509956

PATIENT
  Sex: Male

DRUGS (6)
  1. IBUPROFEN [Suspect]
     Indication: PRODUCT USED FOR UNKNOWN INDICATION
     Route: 065
  2. SUDAFED 12 HOUR [Suspect]
     Route: 048
  3. IMITREX [Suspect]
     Indication: MIGRAINE
     Route: 048
     Dates: start: 20070101
  4. IBUPROFEN [Suspect]
     Route: 065
  5. SUMATRIPTAN SUCCINATE [Suspect]
     Indication: MIGRAINE
     Route: 058
     Dates: start: 20070101
  6. SUDAFED 12 HOUR [Suspect]
     Indication: PRODUCT USED FOR UNKNOWN INDICATION
     Route: 048

REACTIONS (2)
  - TENDONITIS [None]
  - ARTHRALGIA [None]
